FAERS Safety Report 7810145-1 (Version None)
Quarter: 2011Q4

REPORT INFORMATION
  Report Type: 
  Country: None (occurrence: None)
  Receive Date: 20111012
  Receipt Date: 20110929
  Transmission Date: 20120403
  Serious: Yes (Hospitalization)
  Sender: FDA-Public Use
  Company Number: US-GILEAD-2011-0043741

PATIENT

DRUGS (9)
  1. ZITHROMAX [Concomitant]
     Indication: LUNG DISORDER
     Dates: start: 20070123
  2. CREON [Concomitant]
     Indication: PANCREATIC INSUFFICIENCY
     Dates: start: 20100503
  3. ALBUTEROL [Concomitant]
     Indication: LUNG DISORDER
     Dates: start: 20071025
  4. ADEK [Concomitant]
     Indication: MEDICAL DIET
     Dates: start: 20060210
  5. SYMBICORT [Concomitant]
     Indication: LUNG DISORDER
     Dates: start: 20110902
  6. AZTREONAM [Suspect]
     Indication: CYSTIC FIBROSIS
     Route: 055
     Dates: start: 20110902
  7. PULMOZYME [Concomitant]
     Indication: LUNG DISORDER
     Dates: start: 20020401
  8. NEXIUM [Concomitant]
     Indication: PANCREATIC INSUFFICIENCY
     Dates: start: 20100720
  9. VITAMIN D [Concomitant]
     Indication: MEDICAL DIET
     Dates: start: 20100727

REACTIONS (1)
  - LUNG DISORDER [None]
